FAERS Safety Report 12762676 (Version 1)
Quarter: 2016Q3

REPORT INFORMATION
  Report Type: Report from Study
  Country: CO (occurrence: CO)
  Receive Date: 20160920
  Receipt Date: 20160920
  Transmission Date: 20161109
  Serious: Yes (Other)
  Sender: FDA-Public Use
  Company Number: CO-JNJFOC-20160603814

PATIENT
  Age: 62 Year
  Sex: Male
  Weight: 51 kg

DRUGS (2)
  1. INVOKANA [Suspect]
     Active Substance: CANAGLIFLOZIN
     Indication: TYPE 2 DIABETES MELLITUS
     Route: 048
     Dates: start: 20160120
  2. GEMFIBROZIL. [Concomitant]
     Active Substance: GEMFIBROZIL
     Route: 048

REACTIONS (3)
  - Blood triglycerides increased [Recovering/Resolving]
  - Eye irritation [Not Recovered/Not Resolved]
  - Blood creatinine increased [Recovering/Resolving]

NARRATIVE: CASE EVENT DATE: 20160304
